FAERS Safety Report 17010507 (Version 1)
Quarter: 2019Q4

REPORT INFORMATION
  Report Type: Spontaneous
  Country: BG (occurrence: BG)
  Receive Date: 20191108
  Receipt Date: 20191108
  Transmission Date: 20200122
  Serious: Yes (Other)
  Sender: FDA-Public Use
  Company Number: BG-ASTRAZENECA-2019SF56970

PATIENT
  Age: 35 Year
  Sex: Male

DRUGS (2)
  1. SYMBICORT [Suspect]
     Active Substance: BUDESONIDE\FORMOTEROL FUMARATE DIHYDRATE
     Indication: PROPHYLAXIS
     Dosage: 160/4.5 MCG TWO INHALATIONS TWO TIMES A DAY
     Route: 055
     Dates: start: 2011
  2. SYMBICORT [Suspect]
     Active Substance: BUDESONIDE\FORMOTEROL FUMARATE DIHYDRATE
     Indication: PROPHYLAXIS
     Dosage: 160/4.5 MCG ONE INHALATIONS TWO TIMES A DAY
     Route: 055

REACTIONS (1)
  - Asthma [Unknown]

NARRATIVE: CASE EVENT DATE: 2014
